FAERS Safety Report 7037481-3 (Version None)
Quarter: 2010Q4

REPORT INFORMATION
  Report Type: 
  Country: None (occurrence: None)
  Receive Date: 20101011
  Receipt Date: 20101005
  Transmission Date: 20110411
  Serious: Yes (Other)
  Sender: FDA-Public Use
  Company Number: A0882090A

PATIENT
  Age: 71 Year
  Sex: Male

DRUGS (5)
  1. VERAMYST [Suspect]
     Dosage: 2SPR PER DAY
     Route: 045
     Dates: start: 20100916
  2. ATENOLOL [Concomitant]
  3. TRICOR [Concomitant]
  4. ALLOPURINOL [Concomitant]
  5. DIABETES MEDICATION [Concomitant]

REACTIONS (4)
  - CONJUNCTIVAL HAEMORRHAGE [None]
  - OROPHARYNGEAL PAIN [None]
  - STREPTOCOCCAL INFECTION [None]
  - THROAT IRRITATION [None]
